FAERS Safety Report 18831140 (Version 1)
Quarter: 2021Q1

REPORT INFORMATION
  Report Type: Spontaneous
  Country: FR (occurrence: FR)
  Receive Date: 20210203
  Receipt Date: 20210203
  Transmission Date: 20210419
  Serious: Yes (Other)
  Sender: FDA-Public Use
  Company Number: FR-AMGEN-FRASP2021013992

PATIENT
  Age: 67 Year
  Sex: Male
  Weight: 58 kg

DRUGS (11)
  1. NPLATE [Concomitant]
     Active Substance: ROMIPLOSTIM
     Dosage: UNK
  2. INEXIUM [ESOMEPRAZOLE MAGNESIUM] [Concomitant]
     Active Substance: ESOMEPRAZOLE MAGNESIUM
     Dosage: UNK
  3. BACTRIM [Concomitant]
     Active Substance: SULFAMETHOXAZOLE\TRIMETHOPRIM
     Dosage: UNK
  4. KYPROLIS [Suspect]
     Active Substance: CARFILZOMIB
     Indication: PLASMA CELL MYELOMA RECURRENT
     Dosage: 276 MILLIGRAM, ON DAY 1, 8 AND 15
     Route: 041
     Dates: start: 20190809, end: 20201224
  5. CALCIDOSE VITAMINE D [Concomitant]
     Active Substance: CALCIUM\CHOLECALCIFEROL
     Dosage: UNK
  6. ZOPHREN [ONDANSETRON HYDROCHLORIDE] [Concomitant]
     Active Substance: ONDANSETRON
     Dosage: UNK
  7. SKENAN [Concomitant]
     Active Substance: MORPHINE SULFATE
     Dosage: UNK
  8. MACROGOL [Concomitant]
     Active Substance: POLYETHYLENE GLYCOLS
     Dosage: UNK
  9. ZELITREX [Concomitant]
     Active Substance: VALACYCLOVIR HYDROCHLORIDE
     Dosage: UNK
  10. SPECIAFOLDINE [Concomitant]
     Active Substance: FOLIC ACID
     Dosage: UNK
  11. CLAMOXYL [AMOXICILLIN SODIUM] [Concomitant]
     Active Substance: AMOXICILLIN SODIUM
     Dosage: UNK

REACTIONS (2)
  - Varices oesophageal [Not Recovered/Not Resolved]
  - Portal hypertension [Not Recovered/Not Resolved]

NARRATIVE: CASE EVENT DATE: 20210105
